FAERS Safety Report 4996358-5 (Version None)
Quarter: 2006Q2

REPORT INFORMATION
  Report Type: 
  Country: None (occurrence: None)
  Receive Date: 20060509
  Receipt Date: 20060425
  Transmission Date: 20061013
  Serious: Yes (Hospitalization)
  Sender: FDA-Public Use
  Company Number: BR-JNJFOC-20060500028

PATIENT
  Age: 7 Year
  Sex: Male
  Weight: 45 kg

DRUGS (2)
  1. CONCERTA [Suspect]
     Route: 048
  2. HALOPERIDOL [Concomitant]
     Indication: SEDATION
     Route: 048

REACTIONS (2)
  - DELIRIUM [None]
  - DYSTONIA [None]
